FAERS Safety Report 7556001-8 (Version None)
Quarter: 2011Q2

REPORT INFORMATION
  Report Type: 
  Country: None (occurrence: None)
  Receive Date: 20110620
  Receipt Date: 20110609
  Transmission Date: 20111010
  Serious: Yes (Hospitalization)
  Sender: FDA-Public Use
  Company Number: US-BIOGENIDEC-2010BI040018

PATIENT
  Age: 42 Year
  Sex: Female

DRUGS (25)
  1. VYVANSE [Concomitant]
  2. NEXIUM [Concomitant]
  3. NORVASC [Concomitant]
  4. TYSABRI [Suspect]
     Indication: MULTIPLE SCLEROSIS
     Route: 042
     Dates: start: 20100312, end: 20101020
  5. EFFEXOR [Concomitant]
     Indication: PAIN
     Dates: start: 20100101
  6. ASPIRIN [Concomitant]
  7. FENTANYL-100 [Concomitant]
     Route: 062
  8. VYVANSE [Concomitant]
     Indication: FATIGUE
  9. NUVIGIL [Concomitant]
     Indication: FATIGUE
  10. ADVAIR DISKUS 100/50 [Concomitant]
  11. LIDODERM [Concomitant]
     Route: 062
  12. ZANAFLEX [Concomitant]
  13. NUVIGIL [Concomitant]
  14. SENNA-MINT WAF [Concomitant]
  15. XYZAL [Concomitant]
  16. NUVIGIL [Concomitant]
  17. SPIRONOLACTONE [Concomitant]
  18. TRAMADOL HCL [Concomitant]
  19. ALBUTEROL SULFATE AUTOHALER [Concomitant]
  20. AMPYRA [Concomitant]
  21. REMERON [Concomitant]
  22. NUVIGIL [Concomitant]
  23. COZAAR [Concomitant]
  24. FLONASE [Concomitant]
  25. TOPROL-XL [Concomitant]

REACTIONS (19)
  - WEIGHT DECREASED [None]
  - INTERVERTEBRAL DISC DISORDER [None]
  - ADVERSE DRUG REACTION [None]
  - NASOPHARYNGITIS [None]
  - MICTURITION URGENCY [None]
  - PAIN [None]
  - SINUSITIS [None]
  - CONTUSION [None]
  - FALL [None]
  - URINARY TRACT INFECTION [None]
  - BACK PAIN [None]
  - CONVERSION DISORDER [None]
  - FATIGUE [None]
  - MOBILITY DECREASED [None]
  - HEADACHE [None]
  - MULTIPLE SCLEROSIS RELAPSE [None]
  - EYE PAIN [None]
  - HYPOAESTHESIA FACIAL [None]
  - BLADDER DISORDER [None]
